FAERS Safety Report 6736105-X (Version None)
Quarter: 2010Q2

REPORT INFORMATION
  Report Type: 
  Country: None (occurrence: None)
  Receive Date: 20100521
  Receipt Date: 20100513
  Transmission Date: 20101027
  Serious: Yes (Life-Threatening, Other)
  Sender: FDA-Public Use
  Company Number: JP-ROCHE-687636

PATIENT
  Sex: Male
  Weight: 48 kg

DRUGS (6)
  1. AVASTIN [Suspect]
     Indication: COLORECTAL CANCER METASTATIC
     Route: 041
     Dates: start: 20090428, end: 20100120
  2. CAMPTOSAR [Suspect]
     Indication: COLORECTAL CANCER METASTATIC
     Route: 041
     Dates: start: 20090428, end: 20100120
  3. FLUOROURACIL [Suspect]
     Indication: COLORECTAL CANCER METASTATIC
     Route: 040
     Dates: start: 20090428, end: 20090901
  4. FLUOROURACIL [Suspect]
     Route: 040
     Dates: start: 20090428, end: 20090902
  5. ISOVORIN [Suspect]
     Indication: COLORECTAL CANCER METASTATIC
     Route: 041
     Dates: start: 20090428, end: 20090902
  6. FAMOTIDINE [Concomitant]
     Indication: COLORECTAL CANCER METASTATIC
     Route: 065
     Dates: start: 20090428, end: 20100201

REACTIONS (5)
  - BILE DUCT STONE [None]
  - CEREBRAL INFARCTION [None]
  - GRANULOCYTE COUNT DECREASED [None]
  - ILEAL PERFORATION [None]
  - STOMATITIS [None]
